FAERS Safety Report 19253776 (Version 1)
Quarter: 2021Q2

REPORT INFORMATION
  Report Type: Spontaneous
  Country: FR (occurrence: FR)
  Receive Date: 20210513
  Receipt Date: 20210513
  Transmission Date: 20210717
  Serious: Yes (Hospitalization)
  Sender: FDA-Public Use
  Company Number: NVSC2021FR103576

PATIENT
  Age: 78 Year
  Sex: Female
  Weight: 66 kg

DRUGS (9)
  1. SERESTA [Suspect]
     Active Substance: OXAZEPAM
     Indication: BIPOLAR DISORDER
     Dosage: 2 DF, QD
     Route: 048
     Dates: end: 20210330
  2. TERALITHE [Suspect]
     Active Substance: LITHIUM CARBONATE
     Indication: BIPOLAR DISORDER RELAPSE PROPHYLAXIS
     Dosage: 1.5 DF, QD
     Route: 048
     Dates: end: 20210330
  3. IMOVANE [Suspect]
     Active Substance: ZOPICLONE
     Indication: INSOMNIA
     Dosage: 1 DF, QD
     Route: 048
     Dates: end: 20210330
  4. KARDEGIC [Suspect]
     Active Substance: ASPIRIN DL-LYSINE
     Indication: PRODUCT USED FOR UNKNOWN INDICATION
     Dosage: 1 DF, QD
     Route: 048
     Dates: end: 20210330
  5. KYPROLIS [Suspect]
     Active Substance: CARFILZOMIB
     Indication: PLASMA CELL MYELOMA
     Dosage: UNK
     Route: 041
     Dates: start: 20210325, end: 20210325
  6. TERCIAN [Suspect]
     Active Substance: CYAMEMAZINE
     Indication: BIPOLAR DISORDER
     Dosage: 1 DF, QD
     Route: 048
     Dates: end: 20210330
  7. DIFFU K [Suspect]
     Active Substance: POTASSIUM CHLORIDE
     Indication: HYPOKALAEMIA
     Dosage: 3 DF, QD
     Route: 048
     Dates: end: 20210330
  8. ACIDE FOLIQUE [Suspect]
     Active Substance: FOLIC ACID
     Indication: ANAEMIA FOLATE DEFICIENCY
     Dosage: 2 DF, QD
     Route: 048
     Dates: end: 20210330
  9. ESIDREX [Suspect]
     Active Substance: HYDROCHLOROTHIAZIDE
     Indication: HYPERTENSION
     Dosage: 1 DF, QD
     Route: 048
     Dates: end: 20210330

REACTIONS (2)
  - Acute kidney injury [Recovering/Resolving]
  - Encephalopathy [Recovered/Resolved]

NARRATIVE: CASE EVENT DATE: 20210330
